FAERS Safety Report 10469244 (Version 1)
Quarter: 2014Q3

REPORT INFORMATION
  Report Type: Spontaneous
  Country: US (occurrence: None)
  Receive Date: 20140922
  Receipt Date: 20140922
  Transmission Date: 20150326
  Serious: Yes (Disabling)
  Sender: FDA-Public Use
  Company Number: None

PATIENT
  Age: 54 Year
  Sex: Female
  Weight: 58.97 kg

DRUGS (1)
  1. SPIRIVA [Suspect]
     Active Substance: TIOTROPIUM BROMIDE MONOHYDRATE
     Indication: CHRONIC OBSTRUCTIVE PULMONARY DISEASE
     Route: 055
     Dates: start: 20140630, end: 20140903

REACTIONS (10)
  - Back pain [None]
  - Diarrhoea [None]
  - Constipation [None]
  - Loss of consciousness [None]
  - Nausea [None]
  - Abdominal pain [None]
  - Haemorrhage [None]
  - Dry mouth [None]
  - Dry eye [None]
  - Faeces hard [None]

NARRATIVE: CASE EVENT DATE: 20140902
